FAERS Safety Report 10341892 (Version 1)
Quarter: 2014Q3

REPORT INFORMATION
  Report Type: Spontaneous
  Country: CA (occurrence: None)
  Receive Date: 20140722
  Receipt Date: 20140722
  Transmission Date: 20150326
  Serious: Yes (Other)
  Sender: FDA-Public Use
  Company Number: RB-66447-2014

PATIENT
  Age: 19 Year
  Sex: Female
  Weight: 99 kg

DRUGS (3)
  1. SUBUTEX [Suspect]
     Active Substance: BUPRENORPHINE HYDROCHLORIDE
     Indication: DRUG DEPENDENCE
     Route: 060
     Dates: start: 20140410
  2. DICLECTIN (DOXYLAMINE SUCCINATE, PYRIDOXINE HYDROCHLORIDE) [Concomitant]
  3. SUBOXONE (8 MG, 2 MG) [Suspect]
     Active Substance: BUPRENORPHINE HYDROCHLORIDE\NALOXONE HYDROCHLORIDE
     Indication: DRUG DEPENDENCE
     Route: 060
     Dates: start: 201312, end: 20140409

REACTIONS (2)
  - Maternal exposure during pregnancy [None]
  - Abortion spontaneous [None]

NARRATIVE: CASE EVENT DATE: 20140314
